FAERS Safety Report 5805311-0 (Version None)
Quarter: 2008Q3

REPORT INFORMATION
  Report Type: 
  Country: None (occurrence: None)
  Receive Date: 20080708
  Receipt Date: 20080701
  Transmission Date: 20090109
  Serious: Yes (Other)
  Sender: FDA-Public Use
  Company Number: 2008SP013147

PATIENT
  Age: 43 Year
  Sex: Female

DRUGS (2)
  1. PEG-INTRON [Suspect]
     Indication: HEPATITIS C
     Dosage: SC
     Route: 058
     Dates: start: 20080402
  2. RIBASPHERE [Suspect]
     Indication: HEPATITIS C
     Dosage: PO
     Route: 048
     Dates: start: 20080402

REACTIONS (5)
  - BLOOD POTASSIUM DECREASED [None]
  - DECREASED APPETITE [None]
  - DEHYDRATION [None]
  - NAUSEA [None]
  - VOMITING [None]
